FAERS Safety Report 5566263-4 (Version None)
Quarter: 2007Q4

REPORT INFORMATION
  Report Type: 
  Country: None (occurrence: None)
  Receive Date: 20071219
  Receipt Date: 20071217
  Transmission Date: 20080405
  Serious: Yes (Hospitalization, Disabling, Other)
  Sender: FDA-Public Use
  Company Number: DE-BRISTOL-MYERS SQUIBB COMPANY-13975875

PATIENT
  Age: 41 Year
  Sex: Female
  Weight: 65 kg

DRUGS (8)
  1. CYCLOPHOSPHAMIDE [Suspect]
     Indication: BREAST CANCER
     Dates: start: 20070727, end: 20070914
  2. TAXOL [Suspect]
     Indication: BREAST CANCER
     Dates: start: 20071011
  3. EPIRUBICIN [Suspect]
     Indication: BREAST CANCER
     Dates: start: 20070727, end: 20070914
  4. CAPECITABINE [Suspect]
     Indication: BREAST CANCER
     Dates: start: 20071010
  5. LEVOTHYROXINE SODIUM [Concomitant]
  6. TRIMIPRAMINE MALEATE [Concomitant]
  7. ROCEPHIN [Concomitant]
  8. BISOPROLOL [Concomitant]

REACTIONS (2)
  - PELVIC VENOUS THROMBOSIS [None]
  - THROMBOSIS [None]
